FAERS Safety Report 24749322 (Version 1)
Quarter: 2024Q4

REPORT INFORMATION
  Report Type: Spontaneous
  Country: FR (occurrence: FR)
  Receive Date: 20241218
  Receipt Date: 20241218
  Transmission Date: 20250115
  Serious: No
  Sender: PFIZER
  Company Number: FR-PFIZER INC-202400321222

PATIENT

DRUGS (1)
  1. SOMAVERT [Suspect]
     Active Substance: PEGVISOMANT
     Dosage: UNK

REACTIONS (2)
  - Device issue [Unknown]
  - Device leakage [Unknown]
